FAERS Safety Report 5108951-X (Version None)
Quarter: 2006Q3

REPORT INFORMATION
  Report Type: 
  Country: None (occurrence: None)
  Receive Date: 20060920
  Receipt Date: 20060912
  Transmission Date: 20061208
  Serious: Yes (Death)
  Sender: FDA-Public Use
  Company Number: GB-JNJFOC-20060804448

PATIENT
  Sex: Male
  Weight: 100 kg

DRUGS (11)
  1. RISPERDAL CONSTA [Suspect]
     Route: 030
  2. RISPERDAL CONSTA [Suspect]
     Route: 030
  3. RISPERDAL CONSTA [Suspect]
     Indication: SCHIZOPHRENIA
     Route: 030
  4. ESCITALOPRAM [Concomitant]
     Indication: DEPRESSION
  5. PROCYCLIDINE HYDROCHLORIDE 2MG TAB [Concomitant]
     Indication: EXTRAPYRAMIDAL DISORDER
  6. ZIMOVANE [Concomitant]
     Indication: INSOMNIA
  7. PANTOPRAZOLE SODIUM [Concomitant]
  8. PROPRANOLOL HYDROCHLORIDE [Concomitant]
  9. ALBUTEROL SPIROS [Concomitant]
     Indication: ASTHMA
     Route: 055
  10. BUDESONIDE [Concomitant]
     Indication: ASTHMA
  11. CHLORPROMAZINE [Concomitant]
     Indication: AGITATION

REACTIONS (1)
  - ANAPHYLACTIC REACTION [None]
